FAERS Safety Report 7864151-1 (Version None)
Quarter: 2011Q4

REPORT INFORMATION
  Report Type: 
  Country: None (occurrence: None)
  Receive Date: 20111028
  Receipt Date: 20111027
  Transmission Date: 20120403
  Serious: Yes (Death, Hospitalization)
  Sender: FDA-Public Use
  Company Number: US-CEPHALON-2011004851

PATIENT
  Sex: Male

DRUGS (2)
  1. RITUXAN [Concomitant]
     Indication: CHRONIC LYMPHOCYTIC LEUKAEMIA
     Dates: start: 20110912, end: 20110912
  2. TREANDA [Suspect]
     Indication: CHRONIC LYMPHOCYTIC LEUKAEMIA
     Route: 042
     Dates: start: 20080909, end: 20110912

REACTIONS (6)
  - DEATH [None]
  - TACHYPNOEA [None]
  - BLOOD PRESSURE DECREASED [None]
  - CHILLS [None]
  - PYREXIA [None]
  - WHEEZING [None]
